FAERS Safety Report 8321905-5 (Version None)
Quarter: 2012Q2

REPORT INFORMATION
  Report Type: 
  Country: None (occurrence: None)
  Receive Date: 20120430
  Receipt Date: 20091124
  Transmission Date: 20120825
  Serious: No
  Sender: FDA-Public Use
  Company Number: US-TEVA-2009029272

PATIENT
  Sex: Female
  Weight: 60.382 kg

DRUGS (5)
  1. TYLENOL (CAPLET) [Concomitant]
     Indication: SINUS HEADACHE
  2. L-LYSINE [Concomitant]
     Dates: start: 20090601, end: 20091001
  3. PHENERGAN [Concomitant]
     Indication: NAUSEA
     Dates: start: 20091119
  4. PRENATAL PLUS [Concomitant]
     Dates: start: 20091112
  5. NUVIGIL [Suspect]
     Indication: SOMNOLENCE
     Dosage: 250 MILLIGRAM;
     Route: 048
     Dates: start: 20090601, end: 20091123

REACTIONS (3)
  - NAUSEA [None]
  - WEIGHT DECREASED [None]
  - MATERNAL EXPOSURE DURING PREGNANCY [None]
